FAERS Safety Report 6233350-7 (Version None)
Quarter: 2009Q2

REPORT INFORMATION
  Report Type: 
  Country: None (occurrence: None)
  Receive Date: 20090617
  Receipt Date: 20090605
  Transmission Date: 20091009
  Serious: Yes (Other)
  Sender: FDA-Public Use
  Company Number: FR-PFIZER INC-2009223865

PATIENT

DRUGS (5)
  1. ZOLOFT [Suspect]
     Indication: PSYCHOMOTOR HYPERACTIVITY
     Dosage: 50 MG, 1X/DAY
     Dates: start: 19990101
  2. ZOLOFT [Suspect]
     Dosage: 25 MG, 1X/DAY
  3. ZOLOFT [Suspect]
     Dosage: 25 MG, ALTERNATE DAY
     Dates: end: 20090501
  4. TAHOR [Concomitant]
     Indication: HYPERCHOLESTEROLAEMIA
     Dosage: UNK
  5. NEXIUM [Concomitant]
     Indication: GASTROOESOPHAGEAL REFLUX DISEASE

REACTIONS (2)
  - DEPENDENCE [None]
  - FEELING HOT [None]
